FAERS Safety Report 7993742-2 (Version None)
Quarter: 2011Q4

REPORT INFORMATION
  Report Type: 
  Country: None (occurrence: None)
  Receive Date: 20111220
  Receipt Date: 20111207
  Transmission Date: 20120403
  Serious: Yes (Hospitalization)
  Sender: FDA-Public Use
  Company Number: US-BIOGENIDEC-2011BI001010

PATIENT
  Age: 41 Year
  Sex: Male

DRUGS (2)
  1. PAIN MEDICATION (NOS) [Concomitant]
     Indication: BACK PAIN
  2. TYSABRI [Suspect]
     Indication: MULTIPLE SCLEROSIS
     Route: 042
     Dates: start: 20060913

REACTIONS (3)
  - DRUG SPECIFIC ANTIBODY PRESENT [None]
  - INTERVERTEBRAL DISC DISORDER [None]
  - MULTIPLE SCLEROSIS RELAPSE [None]
